FAERS Safety Report 10390262 (Version 1)
Quarter: 2014Q3

REPORT INFORMATION
  Report Type: Spontaneous
  Country: US (occurrence: US)
  Receive Date: 20140818
  Receipt Date: 20140818
  Transmission Date: 20150326
  Serious: No
  Sender: FDA-Public Use
  Company Number: US-BAYER-2014-119953

PATIENT
  Age: 53 Year
  Sex: Female

DRUGS (2)
  1. NIMODIPINE. [Suspect]
     Active Substance: NIMODIPINE
     Indication: CEREBRAL VASOCONSTRICTION
     Dosage: 2 MG, UNK
     Route: 013
  2. NIMODIPINE. [Suspect]
     Active Substance: NIMODIPINE
     Indication: CEREBRAL VASOCONSTRICTION
     Dosage: 3 MG, UNK
     Route: 013

REACTIONS (1)
  - Incorrect route of drug administration [None]
